FAERS Safety Report 5025154-8 (Version None)
Quarter: 2006Q2

REPORT INFORMATION
  Report Type: 
  Country: None (occurrence: None)
  Receive Date: 20060613
  Receipt Date: 20060501
  Transmission Date: 20061013
  Serious: Yes (Death)
  Sender: FDA-Public Use
  Company Number: US-BRISTOL-MYERS SQUIBB COMPANY-13361480

PATIENT
  Age: 60 Year
  Sex: Female
  Weight: 66 kg

DRUGS (6)
  1. COUMADIN [Suspect]
     Indication: CARDIAC OPERATION
     Dates: start: 20020901, end: 20060424
  2. ZOCOR [Concomitant]
     Dates: end: 20060424
  3. LEVOTHROID [Concomitant]
     Dates: end: 20060424
  4. ALBUTEROL [Concomitant]
     Dosage: DOSE = 2-4 PUFFS 4XDAY PRN
     Dates: end: 20060424
  5. ASPIRIN [Concomitant]
     Dates: end: 20060424
  6. ACCUPRIL [Concomitant]
     Dates: end: 20060424

REACTIONS (5)
  - AORTIC VALVE INCOMPETENCE [None]
  - AORTIC VALVE REPLACEMENT [None]
  - CARDIOGENIC SHOCK [None]
  - MITRAL VALVE INCOMPETENCE [None]
  - MYOCARDIAL INFARCTION [None]
